FAERS Safety Report 16792441 (Version 1)
Quarter: 2019Q3

REPORT INFORMATION
  Report Type: Report from Study
  Country: US (occurrence: US)
  Receive Date: 20190910
  Receipt Date: 20190910
  Transmission Date: 20191005
  Serious: Yes (Hospitalization)
  Sender: FDA-Public Use
  Company Number: US-GILEAD-2019-0427401

PATIENT
  Sex: Female

DRUGS (25)
  1. SYNTHROID [Concomitant]
     Active Substance: LEVOTHYROXINE SODIUM
  2. KEPPRA [Concomitant]
     Active Substance: LEVETIRACETAM
  3. BENADRYL [Concomitant]
     Active Substance: DIPHENHYDRAMINE HYDROCHLORIDE
  4. PULMICORT TURBUHALER [Concomitant]
     Active Substance: BUDESONIDE
  5. TOBI [Concomitant]
     Active Substance: TOBRAMYCIN
  6. CHILDRENS TYLENOL [Concomitant]
     Active Substance: ACETAMINOPHEN
  7. MUCOMYST [Concomitant]
     Active Substance: ACETYLCYSTEINE
  8. XOPENEX [Concomitant]
     Active Substance: LEVALBUTEROL HYDROCHLORIDE
  9. PULMOZYME [Concomitant]
     Active Substance: DORNASE ALFA
  10. CLONIDINE. [Concomitant]
     Active Substance: CLONIDINE
  11. PEDIALYTE [ELECTROLYTES NOS;GLUCOSE] [Concomitant]
  12. DIAZEPAM. [Concomitant]
     Active Substance: DIAZEPAM
  13. BANZEL [Concomitant]
     Active Substance: RUFINAMIDE
  14. MELATONIN [Concomitant]
     Active Substance: MELATONIN
  15. AZTREONAM LYSINE [Suspect]
     Active Substance: AZTREONAM LYSINE
     Indication: CYSTIC FIBROSIS
     Dosage: 75 MG, TID
     Route: 055
     Dates: start: 201304
  16. BETHKIS [Concomitant]
     Active Substance: TOBRAMYCIN
  17. BACTRIM [Concomitant]
     Active Substance: SULFAMETHOXAZOLE\TRIMETHOPRIM
  18. FLUCONAZOLE AND SODIUM CHLORIDE [Concomitant]
     Active Substance: FLUCONAZOLE
  19. PEPTAMEN JUNIOR [Concomitant]
     Active Substance: DIETARY SUPPLEMENT
  20. CALCIUM CARBONATE. [Concomitant]
     Active Substance: CALCIUM CARBONATE
  21. MIRALAX [Concomitant]
     Active Substance: POLYETHYLENE GLYCOL 3350
  22. SINGULAIR [Concomitant]
     Active Substance: MONTELUKAST SODIUM
  23. ONE DAILY MULTI VITAMINS [Concomitant]
  24. DEPAKENE [VALPROATE SODIUM] [Concomitant]
  25. BACTROBAN [Concomitant]
     Active Substance: MUPIROCIN\MUPIROCIN CALCIUM

REACTIONS (1)
  - Respiratory tract infection [Unknown]
